FAERS Safety Report 6910542-2 (Version None)
Quarter: 2010Q3

REPORT INFORMATION
  Report Type: 
  Country: None (occurrence: None)
  Receive Date: 20100806
  Receipt Date: 20100803
  Transmission Date: 20110219
  Serious: Yes (Other)
  Sender: FDA-Public Use
  Company Number: US-BRISTOL-MYERS SQUIBB COMPANY-15224348

PATIENT
  Sex: Male

DRUGS (19)
  1. ABILIFY [Interacting]
  2. ATENOLOL [Suspect]
  3. FERROUS SULFATE [Interacting]
  4. FELDENE [Interacting]
     Dosage: CAPSULE
  5. GABAPENTIN [Interacting]
  6. FOLIC ACID [Interacting]
  7. DIGOXIN [Interacting]
  8. ZYRTEC [Interacting]
     Route: 048
  9. TRAMADOL HYDROCHLORIDE [Interacting]
  10. NORVIR [Interacting]
     Route: 048
  11. DIPHENHYDRAMINE [Interacting]
  12. LOPERAMIDE [Interacting]
  13. ATROVENT [Interacting]
  14. COZAAR [Interacting]
     Route: 048
  15. LEXAPRO [Interacting]
     Route: 048
  16. EPOGEN [Interacting]
  17. CARVEDILOL [Interacting]
  18. SEROQUEL [Interacting]
  19. LACTOSE [Interacting]

REACTIONS (2)
  - DRUG INTERACTION [None]
  - RASH [None]
